FAERS Safety Report 6787926-9 (Version None)
Quarter: 2010Q2

REPORT INFORMATION
  Report Type: 
  Country: None (occurrence: None)
  Receive Date: 20100623
  Receipt Date: 20070915
  Transmission Date: 20101027
  Serious: No
  Sender: FDA-Public Use
  Company Number: US-PFIZER INC-2007078115

PATIENT
  Sex: Female
  Weight: 100 kg

DRUGS (10)
  1. DEPO-PROVERA SUSPENSION/INJ [Suspect]
     Indication: CONTRACEPTION
     Route: 030
     Dates: start: 20070911
  2. SEROQUEL [Concomitant]
  3. WELLBUTRIN SR [Concomitant]
  4. ZONEGRAN [Concomitant]
  5. TRAZODONE HYDROCHLORIDE [Concomitant]
  6. ABILIFY [Concomitant]
  7. SEREVENT [Concomitant]
     Indication: ASTHMA
  8. FLOVENT [Concomitant]
     Indication: ASTHMA
  9. PROAIR HFA [Concomitant]
     Indication: ASTHMA
  10. LEVOTHYROXINE SODIUM [Concomitant]
     Indication: THYROID DISORDER

REACTIONS (2)
  - DIZZINESS [None]
  - VAGINAL DISORDER [None]
